FAERS Safety Report 4529363-3 (Version None)
Quarter: 2004Q4

REPORT INFORMATION
  Report Type: 
  Country: None (occurrence: None)
  Receive Date: 20041215
  Receipt Date: 20041215
  Transmission Date: 20050328
  Serious: No
  Sender: FDA-Public Use
  Company Number: None

PATIENT
  Age: 41 Year
  Sex: Male
  Weight: 72.5755 kg

DRUGS (1)
  1. NITROFURANTOIN [Suspect]
     Dosage: 50 MG BID ORAL
     Route: 048
     Dates: start: 20041101, end: 20041115

REACTIONS (3)
  - PHARMACEUTICAL PRODUCT COMPLAINT [None]
  - PYURIA [None]
  - URINARY TRACT INFECTION [None]
